FAERS Safety Report 10721443 (Version 2)
Quarter: 2015Q1

REPORT INFORMATION
  Report Type: Spontaneous
  Country: BR (occurrence: BR)
  Receive Date: 20150119
  Receipt Date: 20150203
  Transmission Date: 20150721
  Serious: Yes (Hospitalization)
  Sender: FDA-Public Use
  Company Number: BR-SA-2015SA004549

PATIENT
  Age: 29 Year
  Sex: Female

DRUGS (2)
  1. CLEXANE [Suspect]
     Active Substance: ENOXAPARIN SODIUM
     Indication: PROPHYLAXIS
     Dosage: DOSE:1 SYRINGE
     Route: 058
  2. ENOXAPARIN [Suspect]
     Active Substance: ENOXAPARIN
     Indication: PROPHYLAXIS
     Dosage: DOSE: 1 SYRINGE
     Route: 058

REACTIONS (7)
  - Cellulitis [Recovering/Resolving]
  - Pyrexia [Recovering/Resolving]
  - Vomiting [Recovering/Resolving]
  - Injection site reaction [Recovering/Resolving]
  - Skin tightness [Recovering/Resolving]
  - Oedema [Recovering/Resolving]
  - Nausea [Recovering/Resolving]
